FAERS Safety Report 20887243 (Version 1)
Quarter: 2022Q2

REPORT INFORMATION
  Report Type: Report from Study
  Country: GB (occurrence: GB)
  Receive Date: 20220528
  Receipt Date: 20220528
  Transmission Date: 20220721
  Serious: Yes (Other)
  Sender: FDA-Public Use
  Company Number: GB-ALXN-A202113131

PATIENT
  Sex: Male

DRUGS (3)
  1. ALLOPURINOL [Suspect]
     Active Substance: ALLOPURINOL
     Indication: Gout
     Dosage: 100 MILLIGRAM DAILY; UNIT DOSE : 100 MG , FREQUENCY :QD
     Route: 065
  2. SOLIRIS [Suspect]
     Active Substance: ECULIZUMAB
     Indication: Atypical haemolytic uraemic syndrome
     Dosage: UNK
     Route: 065
     Dates: start: 20170223
  3. SOLIRIS [Suspect]
     Active Substance: ECULIZUMAB
     Dosage: UNIT DOSE : 1200 MG,  FREQUENCY : 1 , FREQUENCY TIME : 2 WEEKS
     Route: 042
     Dates: start: 20180125

REACTIONS (12)
  - Rheumatoid arthritis [Unknown]
  - Renal impairment [Unknown]
  - Poor venous access [Not Recovered/Not Resolved]
  - Dyspnoea [Not Recovered/Not Resolved]
  - Dyspnoea exertional [Not Recovered/Not Resolved]
  - Arthralgia [Not Recovered/Not Resolved]
  - Fatigue [Not Recovered/Not Resolved]
  - Gout [Unknown]
  - White coat hypertension [Unknown]
  - Blood creatinine increased [Unknown]
  - Glomerular filtration rate decreased [Unknown]
  - Blood pressure increased [Unknown]

NARRATIVE: CASE EVENT DATE: 20220511
